FAERS Safety Report 9664141 (Version 1)
Quarter: 2013Q4

REPORT INFORMATION
  Report Type: Spontaneous
  Country: US (occurrence: None)
  Receive Date: 20131030
  Receipt Date: 20131030
  Transmission Date: 20140711
  Serious: No
  Sender: FDA-Public Use
  Company Number: None

PATIENT
  Age: 24 Year
  Sex: Female
  Weight: 65.32 kg

DRUGS (1)
  1. D-AMPHETAMINE [Suspect]
     Dosage: XR 15MG  ONE DAILY ORAL
     Route: 048
     Dates: start: 20130221

REACTIONS (2)
  - Musculoskeletal stiffness [None]
  - Musculoskeletal stiffness [None]
